FAERS Safety Report 9335851 (Version 5)
Quarter: 2014Q3

REPORT INFORMATION
  Report Type: Report from Study
  Country: US (occurrence: US)
  Receive Date: 20130606
  Receipt Date: 20140716
  Transmission Date: 20150326
  Serious: Yes (Hospitalization)
  Sender: FDA-Public Use
  Company Number: US-FRI-1000045513

PATIENT
  Age: 70 Year
  Sex: Male
  Weight: 95 kg

DRUGS (16)
  1. PRILOSEC [Concomitant]
     Active Substance: OMEPRAZOLE MAGNESIUM
     Indication: IRRITABLE BOWEL SYNDROME
     Dosage: 20 MG
     Route: 048
     Dates: start: 2006
  2. SALINE [Concomitant]
     Active Substance: SODIUM CHLORIDE
     Indication: CHRONIC OBSTRUCTIVE PULMONARY DISEASE
     Route: 045
     Dates: start: 2008
  3. DILTIAZEM HCL [Concomitant]
     Active Substance: DILTIAZEM HYDROCHLORIDE
     Indication: HYPERTENSION
     Dosage: 360 MG
     Route: 048
     Dates: start: 2008
  4. GEMFIBROZIL. [Concomitant]
     Active Substance: GEMFIBROZIL
     Indication: HYPERLIPIDAEMIA
     Dosage: 1200 MG
     Route: 048
     Dates: start: 2003
  5. CALCIUM/ VITAMIN D MINERAL SUPPLEMENT [Concomitant]
     Indication: NUTRITIONAL SUPPLEMENTATION
     Dosage: 1 DOSAGE FORM
     Route: 048
     Dates: start: 1992
  6. VITAMIN C [Concomitant]
     Active Substance: ASCORBIC ACID
     Indication: NUTRITIONAL SUPPLEMENTATION
     Dosage: 500 MG
     Route: 048
     Dates: start: 1992
  7. WARFARIN [Suspect]
     Active Substance: WARFARIN
     Indication: AORTIC VALVE DISEASE
     Dosage: 6 MG
     Route: 048
     Dates: start: 2002, end: 20130524
  8. CITALOPRAM HYDROBROMIDE. [Concomitant]
     Active Substance: CITALOPRAM HYDROBROMIDE
     Indication: ANXIETY
     Dosage: 20 MG
     Route: 048
     Dates: start: 2008
  9. MUCINEX [Concomitant]
     Active Substance: GUAIFENESIN
     Indication: CHRONIC OBSTRUCTIVE PULMONARY DISEASE
     Dosage: 1200 MG
     Route: 048
     Dates: start: 2008
  10. LASIX [Concomitant]
     Active Substance: FUROSEMIDE
     Indication: HYPERTENSION
     Dosage: 20 MG
     Route: 048
     Dates: start: 2002
  11. TUMS [Concomitant]
     Active Substance: CALCIUM CARBONATE
     Indication: DYSPEPSIA
     Route: 048
     Dates: start: 20130320
  12. ALENDRONATE SODIUM. [Concomitant]
     Active Substance: ALENDRONATE SODIUM
     Indication: OSTEOPOROSIS
     Dosage: 70 MG
     Route: 048
     Dates: start: 2009, end: 20130528
  13. IRON [Concomitant]
     Active Substance: IRON
     Indication: ANAEMIA
     Dosage: 600 MG
     Route: 048
     Dates: start: 2005
  14. MULTIVITAMIN [Concomitant]
     Active Substance: VITAMINS
     Indication: NUTRITIONAL SUPPLEMENTATION
     Dosage: 1 DOSAGE FORM
     Route: 048
     Dates: start: 1992
  15. SYMBICORT [Concomitant]
     Active Substance: BUDESONIDE\FORMOTEROL FUMARATE DIHYDRATE
     Indication: CHRONIC OBSTRUCTIVE PULMONARY DISEASE
     Dosage: 640/18 MCG
     Route: 055
     Dates: start: 2008
  16. ROFLUMILAST [Suspect]
     Active Substance: ROFLUMILAST
     Indication: CHRONIC OBSTRUCTIVE PULMONARY DISEASE
     Dosage: 500 MCG
     Route: 048
     Dates: start: 20130204, end: 20130524

REACTIONS (2)
  - Arthralgia [Recovered/Resolved]
  - Gastrointestinal haemorrhage [Recovered/Resolved]

NARRATIVE: CASE EVENT DATE: 20130524
